FAERS Safety Report 22118952 (Version 1)
Quarter: 2023Q1

REPORT INFORMATION
  Report Type: Spontaneous
  Country: US (occurrence: US)
  Receive Date: 20230321
  Receipt Date: 20230321
  Transmission Date: 20230417
  Serious: Yes (Hospitalization)
  Sender: FDA-Public Use
  Company Number: US-drreddys-LIT/USA/23/0162555

PATIENT
  Age: 13 Year
  Sex: Female

DRUGS (5)
  1. POSACONAZOLE [Suspect]
     Active Substance: POSACONAZOLE
     Indication: Rhinocerebral mucormycosis
  2. AMPHOTERICIN B [Suspect]
     Active Substance: AMPHOTERICIN B
     Indication: Rhinocerebral mucormycosis
  3. AMPHOTERICIN B [Suspect]
     Active Substance: AMPHOTERICIN B
     Indication: Encephalitis
  4. INSULIN NOS [Concomitant]
     Active Substance: INSULIN NOS
     Indication: Product used for unknown indication
  5. SODIUM CHLORIDE [Concomitant]
     Active Substance: SODIUM CHLORIDE
     Indication: Product used for unknown indication

REACTIONS (9)
  - Disease progression [Recovering/Resolving]
  - Rhinocerebral mucormycosis [Recovering/Resolving]
  - Nervous system disorder [Recovering/Resolving]
  - Hemiparesis [Recovering/Resolving]
  - Thrombosis in device [Recovering/Resolving]
  - Pneumonia aspiration [Recovering/Resolving]
  - Nephropathy toxic [Recovering/Resolving]
  - Electrocardiogram QT prolonged [Recovering/Resolving]
  - Drug ineffective for unapproved indication [Unknown]
